FAERS Safety Report 24681872 (Version 1)
Quarter: 2024Q4

REPORT INFORMATION
  Report Type: Spontaneous
  Country: US (occurrence: US)
  Receive Date: 20241130
  Receipt Date: 20241130
  Transmission Date: 20250115
  Serious: Yes (Other)
  Sender: Unknown Manufacturer
  Company Number: US-KOANAAP-SML-US-2024-01162

PATIENT
  Age: 7 Year
  Sex: Female

DRUGS (2)
  1. BUSULFAN [Suspect]
     Active Substance: BUSULFAN
     Indication: Bone marrow conditioning regimen
     Route: 065
  2. CYCLOPHOSPHAMIDE [Suspect]
     Active Substance: CYCLOPHOSPHAMIDE
     Indication: Bone marrow conditioning regimen
     Route: 065

REACTIONS (3)
  - Drug ineffective [Unknown]
  - Graft versus host disease [Recovered/Resolved]
  - Leukoencephalopathy [Recovered/Resolved]
